FAERS Safety Report 24726187 (Version 1)
Quarter: 2024Q4

REPORT INFORMATION
  Report Type: Spontaneous
  Country: NL (occurrence: NL)
  Receive Date: 20241212
  Receipt Date: 20241212
  Transmission Date: 20250114
  Serious: Yes (Other)
  Sender: TEVA
  Company Number: None

PATIENT
  Age: 31 Year
  Sex: Female

DRUGS (22)
  1. DEXAMETHASONE [Suspect]
     Active Substance: DEXAMETHASONE
     Indication: Cough
     Dosage: 3 DAYS: 1DD8MG, 4 DAYS: 1DD4MG, 11 DAYS: 1DD6MG; BRAND NAME NOT SPECIFIED
     Route: 048
     Dates: start: 20241004, end: 20241027
  2. CEFTRIAXONE [Concomitant]
     Active Substance: CEFTRIAXONE
     Indication: Product used for unknown indication
     Dosage: DOSAGE: 100 MG/ML INJECTION FLUID, INJVLST/ BRAND NAME NOT SPECIFIED
     Route: 065
  3. FENTANYL [Concomitant]
     Active Substance: FENTANYL
     Indication: Product used for unknown indication
     Dosage: FENTANYL SUCTION TABLET / BRAND NAME NOT SPECIFIED
  4. ACETYLCYSTEINE [Concomitant]
     Active Substance: ACETYLCYSTEINE
     Indication: Product used for unknown indication
     Dosage: BRAND NAME NOT SPECIFIED
     Route: 048
  5. XYLOMETAZOLINE [Concomitant]
     Active Substance: XYLOMETAZOLINE
     Indication: Product used for unknown indication
     Dosage: DOSAGE: 1 MG/ML BRAND NAME NOT SPECIFIED
     Route: 045
  6. XGEVA [Concomitant]
     Active Substance: DENOSUMAB
     Indication: Product used for unknown indication
     Dosage: DOSAGE: 120 MG/ML INJECTION FLUID; DENOSUMAB INJVLST/120 INJVLST 120MG/ML WWSP 1ML
     Route: 065
  7. POLYETHYLENE GLYCOLS [Concomitant]
     Active Substance: POLYETHYLENE GLYCOLS
     Indication: Product used for unknown indication
     Dosage: MACROGOL/SALTING DRINK / BRAND NAME NOT SPECIFIED
     Route: 065
  8. DALTEPARIN [Concomitant]
     Active Substance: DALTEPARIN
     Indication: Product used for unknown indication
     Dosage: INJECTION FLUID, 25,000 IU/ML (UNITS PER MILLILITER); INJVLST 25,000IE/ML / BRAND NAME NOT SPECIFIED
     Route: 065
  9. NYSTATIN [Concomitant]
     Active Substance: NYSTATIN
     Indication: Product used for unknown indication
     Dosage: SUSPENSION, 100,000 UNITS/ML (UNITS PER MILLILITER); 100,000U/ML / BRAND NAME NOT SPECIFIED
     Route: 048
  10. PEGFILGRASTIM [Concomitant]
     Active Substance: PEGFILGRASTIM
     Indication: Product used for unknown indication
     Dosage: 1 MG/MG (MILLIGRAM PER MILLIGRAM); BRAND NAME NOT SPECIFIED
     Route: 065
  11. LIDOCAINE [Concomitant]
     Active Substance: LIDOCAINE
     Indication: Product used for unknown indication
     Dosage: DOSAGE: 20 MG/ML GEL, BRAND NAME NOT SPECIFIED
     Route: 048
  12. TEMAZEPAM [Concomitant]
     Active Substance: TEMAZEPAM
     Indication: Product used for unknown indication
     Dosage: BRAND NAME NOT SPECIFIED
     Route: 048
  13. GENTAMICIN [Concomitant]
     Active Substance: GENTAMICIN
     Indication: Product used for unknown indication
     Dosage: DOSAGE: 40 MG/ML INJVLST / BRAND NAME NOT SPECIFIED
     Route: 065
  14. LOPERAMIDE [Concomitant]
     Active Substance: LOPERAMIDE
     Indication: Product used for unknown indication
     Dosage: BRAND NAME NOT SPECIFIED
     Route: 048
  15. ACETAMINOPHEN [Concomitant]
     Active Substance: ACETAMINOPHEN
     Indication: Product used for unknown indication
     Dosage: BRAND NAME NOT SPECIFIED
     Route: 048
  16. TOCILIZUMAB [Concomitant]
     Active Substance: TOCILIZUMAB
     Indication: Product used for unknown indication
     Dosage: ONE-TIME 400MG IV, CONCENTRATION UNCLEAR;INFUUS / BRAND NAME NOT SPECIFIED
     Route: 065
  17. MORPHINE [Concomitant]
     Active Substance: MORPHINE
     Indication: Product used for unknown indication
     Dosage: TABLET MGA (HCL) / BRAND NAME NOT SPECIFIED
     Route: 048
  18. METOCLOPRAMIDE [Concomitant]
     Active Substance: METOCLOPRAMIDE
     Indication: Product used for unknown indication
     Dosage: BRAND NAME NOT SPECIFIED
     Route: 048
  19. MIRTAZAPINE [Concomitant]
     Active Substance: MIRTAZAPINE
     Indication: Product used for unknown indication
     Dosage: BRAND NAME NOT SPECIFIED
     Route: 048
  20. OXAZEPAM [Concomitant]
     Active Substance: OXAZEPAM
     Indication: Product used for unknown indication
     Dosage: BRAND NAME NOT SPECIFIED
     Route: 048
  21. CALCIUM [Concomitant]
     Active Substance: CALCIUM
     Indication: Product used for unknown indication
     Dosage: 500 MG (MILLIGRAM)/800 UNITS; CALCIUM /COLECALCIFEROL 500MG/800IE / BRAND NAME NOT SPECIFIED
     Route: 048
  22. OMEPRAZOLE [Concomitant]
     Active Substance: OMEPRAZOLE
     Indication: Product used for unknown indication
     Dosage: CAPSULE MSR / ANTACID OMEPRAZOL CF CAPSULE MSR
     Route: 048

REACTIONS (1)
  - Central serous chorioretinopathy [Unknown]
